FAERS Safety Report 9822078 (Version 2)
Quarter: 2014Q2

REPORT INFORMATION
  Report Type: Spontaneous
  Country: JP (occurrence: JP)
  Receive Date: 20140116
  Receipt Date: 20140522
  Transmission Date: 20141212
  Serious: Yes (Hospitalization, Other)
  Sender: FDA-Public Use
  Company Number: PHHY2014JP003772

PATIENT
  Age: 62 Year
  Sex: Female

DRUGS (1)
  1. NEORAL [Suspect]
     Dosage: UNK UKN, UNK
     Route: 048

REACTIONS (3)
  - Condition aggravated [Recovering/Resolving]
  - Depressed level of consciousness [Recovering/Resolving]
  - Oral administration complication [Unknown]
